FAERS Safety Report 6151173-4 (Version None)
Quarter: 2009Q2

REPORT INFORMATION
  Report Type: 
  Country: None (occurrence: None)
  Receive Date: 20090408
  Receipt Date: 20090408
  Transmission Date: 20091009
  Serious: Yes (Life-Threatening, Hospitalization)
  Sender: FDA-Public Use
  Company Number: None

PATIENT
  Sex: Male
  Weight: 94.3482 kg

DRUGS (1)
  1. XIGRIS [Suspect]
     Indication: SEPTIC SHOCK
     Dosage: 20MG/200ML@22.5ML/HR X 96HR CONTINUOUS INFUSIO IV DRIP
     Route: 041
     Dates: start: 20080607, end: 20080610

REACTIONS (3)
  - CONVULSION [None]
  - INTRACRANIAL HAEMATOMA [None]
  - VISUAL ACUITY REDUCED [None]
